FAERS Safety Report 18094904 (Version 1)
Quarter: 2020Q3

REPORT INFORMATION
  Report Type: Spontaneous
  Country: CN (occurrence: CN)
  Receive Date: 20200731
  Receipt Date: 20200731
  Transmission Date: 20201103
  Serious: Yes (Other)
  Sender: FDA-Public Use
  Company Number: CN-ROCHE-2650700

PATIENT
  Age: 42 Year
  Sex: Male

DRUGS (13)
  1. XELODA [Suspect]
     Active Substance: CAPECITABINE
     Indication: COLON CANCER METASTATIC
     Dosage: 3# TWICE PER DAY,DAY1?14, ONCE PER 3 WEEKS, 6 CYCLES
     Route: 048
     Dates: end: 201911
  2. OXALIPLATIN. [Concomitant]
     Active Substance: OXALIPLATIN
     Dosage: DAY 1, 4 CYCLES
     Dates: start: 20190321
  3. CALCIUM FOLINATE [Concomitant]
     Active Substance: LEUCOVORIN CALCIUM
     Dosage: 0.4/M2, DAY 1, 4 CYCLES
     Dates: start: 20190321
  4. XELODA [Suspect]
     Active Substance: CAPECITABINE
     Route: 048
     Dates: start: 202003
  5. IRINOTECAN [Concomitant]
     Active Substance: IRINOTECAN
     Dosage: DAY 1, 4 CYCLES
     Dates: start: 20190321
  6. AVASTIN [Suspect]
     Active Substance: BEVACIZUMAB
     Dosage: DAY 1, 6 CYCLES
     Route: 065
  7. IRINOTECAN [Concomitant]
     Active Substance: IRINOTECAN
     Indication: COLON CANCER METASTATIC
     Dosage: DAY 1, 5 CYCLES
     Dates: start: 20180831
  8. 5?FLUOROURACIL [Concomitant]
     Active Substance: FLUOROURACIL
     Dosage: 3.2/M2, 48H, 4 CYCLES
     Dates: start: 20190321
  9. AVASTIN [Suspect]
     Active Substance: BEVACIZUMAB
     Dosage: DAY 1, 4 CYCLES
     Route: 065
     Dates: start: 20190321
  10. OXALIPLATIN. [Concomitant]
     Active Substance: OXALIPLATIN
     Indication: COLON CANCER METASTATIC
     Dosage: DAY 1, 5 CYCLES
     Dates: start: 20180831
  11. AVASTIN [Suspect]
     Active Substance: BEVACIZUMAB
     Indication: COLON CANCER METASTATIC
     Dosage: DAY 1, 5 CYCLES
     Route: 065
     Dates: start: 20180831
  12. CALCIUM FOLINATE [Concomitant]
     Active Substance: LEUCOVORIN CALCIUM
     Indication: COLON CANCER METASTATIC
     Dosage: 0.4/M2, DAY 1, 5 CYCLES
     Dates: start: 20180831
  13. 5?FLUOROURACIL [Concomitant]
     Active Substance: FLUOROURACIL
     Indication: COLON CANCER METASTATIC
     Dosage: 3.2/M2, 48H, 5 CYCLES
     Dates: start: 20180831

REACTIONS (3)
  - Gastrointestinal disorder [Unknown]
  - Fatigue [Unknown]
  - Myelosuppression [Unknown]
